FAERS Safety Report 6804078-7 (Version None)
Quarter: 2010Q2

REPORT INFORMATION
  Report Type: 
  Country: None (occurrence: None)
  Receive Date: 20100628
  Receipt Date: 20060913
  Transmission Date: 20101027
  Serious: Yes (Other)
  Sender: FDA-Public Use
  Company Number: US-PFIZER INC-2006111552

PATIENT
  Age: 74 Year
  Sex: Male
  Weight: 62.6 kg

DRUGS (13)
  1. SUTENT [Suspect]
     Indication: RENAL CELL CARCINOMA
     Dates: start: 20060823
  2. ALL OTHER THERAPEUTIC PRODUCTS [Concomitant]
  3. IODINE [Concomitant]
     Route: 042
  4. CYPROHEPTADINE HCL [Concomitant]
  5. TYLENOL [Concomitant]
  6. PROTONIX [Concomitant]
     Route: 042
  7. SENNA [Concomitant]
     Route: 042
  8. LEVOTHYROXINE SODIUM [Concomitant]
  9. SINEMET [Concomitant]
  10. ATENOLOL [Concomitant]
  11. ENTACAPONE [Concomitant]
  12. MULTI-VITAMINS [Concomitant]
  13. IRON [Concomitant]

REACTIONS (1)
  - HAEMORRHAGE [None]
